FAERS Safety Report 4782396-4 (Version None)
Quarter: 2005Q3

REPORT INFORMATION
  Report Type: 
  Country: None (occurrence: None)
  Receive Date: 20050929
  Receipt Date: 20050914
  Transmission Date: 20060218
  Serious: Yes (Disabling)
  Sender: FDA-Public Use
  Company Number: US-KINGPHARMUSA00001-K200501206

PATIENT
  Age: 86 Year
  Sex: Female

DRUGS (4)
  1. ALTACE [Suspect]
     Indication: BLOOD PRESSURE INCREASED
     Dosage: 5 MG, QD
     Route: 048
     Dates: start: 20050216, end: 20050902
  2. ASPIRIN [Concomitant]
     Indication: PULMONARY EMBOLISM
     Dosage: 75 MG, UNK
     Dates: start: 20050505
  3. WARFARIN SODIUM [Concomitant]
     Indication: PULMONARY EMBOLISM
     Dosage: 7.5 MG, UNK
     Dates: start: 20050505
  4. OXYBUTYNIN [Concomitant]
     Indication: HYPERTONIC BLADDER
     Dosage: 10 MG, UNK

REACTIONS (4)
  - ACTIVITIES OF DAILY LIVING IMPAIRED [None]
  - CONFUSIONAL STATE [None]
  - MEMORY IMPAIRMENT [None]
  - SYNCOPE VASOVAGAL [None]
